FAERS Safety Report 25578848 (Version 1)
Quarter: 2025Q3

REPORT INFORMATION
  Report Type: Spontaneous
  Country: US (occurrence: US)
  Receive Date: 20250718
  Receipt Date: 20250718
  Transmission Date: 20251020
  Serious: No
  Sender: TEVA
  Company Number: US-TEVA-VS-3350463

PATIENT
  Sex: Female

DRUGS (1)
  1. BUPRENORPHINE [Suspect]
     Active Substance: BUPRENORPHINE
     Indication: Product used for unknown indication
     Route: 060
     Dates: start: 2015

REACTIONS (3)
  - Oral discomfort [Not Recovered/Not Resolved]
  - Wrong technique in product usage process [Unknown]
  - Pruritus [Not Recovered/Not Resolved]
